FAERS Safety Report 7410099-6 (Version None)
Quarter: 2011Q2

REPORT INFORMATION
  Report Type: 
  Country: None (occurrence: None)
  Receive Date: 20110412
  Receipt Date: 20110302
  Transmission Date: 20111010
  Serious: Yes (Other)
  Sender: FDA-Public Use
  Company Number: PHHY2011BR08452

PATIENT
  Age: 82 Year
  Sex: Female

DRUGS (1)
  1. MIACALCIN [Suspect]
     Dosage: 200 IU, UNK
     Route: 045

REACTIONS (4)
  - ISCHAEMIA [None]
  - CEREBROVASCULAR ACCIDENT [None]
  - CAROTID ARTERY OCCLUSION [None]
  - SPEECH DISORDER [None]
